FAERS Safety Report 19976760 (Version 2)
Quarter: 2021Q4

REPORT INFORMATION
  Report Type: Spontaneous
  Country: CN (occurrence: CN)
  Receive Date: 20211020
  Receipt Date: 20211026
  Transmission Date: 20220303
  Serious: Yes (Hospitalization)
  Sender: FDA-Public Use
  Company Number: CN-ELI_LILLY_AND_COMPANY-CN202110006536

PATIENT
  Age: 85 Year
  Sex: Male
  Weight: 84 kg

DRUGS (1)
  1. HUMULIN R [Suspect]
     Active Substance: INSULIN HUMAN
     Indication: Diabetes mellitus
     Dosage: 28 U, BID
     Route: 058
     Dates: start: 2013

REACTIONS (3)
  - Blood glucose increased [Unknown]
  - Tympanic membrane disorder [Unknown]
  - Pain in extremity [Unknown]
